APPROVED DRUG PRODUCT: ORFADIN
Active Ingredient: NITISINONE
Strength: 5MG
Dosage Form/Route: CAPSULE;ORAL
Application: N021232 | Product #002 | TE Code: AB
Applicant: SWEDISH ORPHAN BIOVITRUM AB PUBL
Approved: Jan 18, 2002 | RLD: Yes | RS: No | Type: RX